FAERS Safety Report 24435936 (Version 1)
Quarter: 2024Q4

REPORT INFORMATION
  Report Type: Spontaneous
  Country: US (occurrence: US)
  Receive Date: 20241015
  Receipt Date: 20241015
  Transmission Date: 20250115
  Serious: No
  Sender: SPROUT PHARMACEUTICALS, INC.
  Company Number: US-Sprout Pharmaceuticals, Inc.-2024SP000071

PATIENT
  Age: 47 Year
  Sex: Female
  Weight: 49.94 kg

DRUGS (5)
  1. ADDYI [Suspect]
     Active Substance: FLIBANSERIN
     Indication: Loss of libido
     Dosage: SPROMC-3121 VERSION 1
     Route: 048
     Dates: end: 20240223
  2. ADDYI [Suspect]
     Active Substance: FLIBANSERIN
     Indication: Libido decreased
  3. CELEXA [Concomitant]
     Active Substance: CITALOPRAM HYDROBROMIDE
     Indication: Irritability
     Dates: start: 20240223
  4. ADDERALL [Concomitant]
     Active Substance: AMPHETAMINE ASPARTATE\AMPHETAMINE SULFATE\DEXTROAMPHETAMINE SACCHARATE\DEXTROAMPHETAMINE SULFATE
     Indication: Product used for unknown indication
  5. ZINC [Concomitant]
     Active Substance: ZINC
     Indication: Product used for unknown indication

REACTIONS (3)
  - Drug ineffective [Unknown]
  - Therapy interrupted [Not Recovered/Not Resolved]
  - Irritability [Unknown]

NARRATIVE: CASE EVENT DATE: 20240223
